FAERS Safety Report 4262957-1 (Version None)
Quarter: 2004Q1

REPORT INFORMATION
  Report Type: 
  Country: None (occurrence: None)
  Receive Date: 20040102
  Receipt Date: 20040102
  Transmission Date: 20041129
  Serious: No
  Sender: FDA-Public Use
  Company Number: None

PATIENT
  Sex: Male
  Weight: 105.2 kg

DRUGS (2)
  1. ZIPRASIDONE [Suspect]
     Indication: SCHIZOPHRENIA
     Dosage: 20 MG PO QAM/40 MG PO QPM
     Route: 048
  2. DIPHENHYDRAMINE HCL [Concomitant]

REACTIONS (1)
  - TARDIVE DYSKINESIA [None]
